FAERS Safety Report 23856423 (Version 1)
Quarter: 2024Q2

REPORT INFORMATION
  Report Type: Spontaneous
  Country: US (occurrence: US)
  Receive Date: 20240515
  Receipt Date: 20240515
  Transmission Date: 20240716
  Serious: No
  Sender: FDA-Public Use
  Company Number: US-AMGEN-USASP2024092255

PATIENT

DRUGS (1)
  1. BEVACIZUMAB [Suspect]
     Active Substance: BEVACIZUMAB
     Indication: Neoplasm malignant
     Dosage: UNK
     Route: 065

REACTIONS (11)
  - Catheter site scab [Unknown]
  - Vascular access site erythema [Unknown]
  - Vascular access site swelling [Unknown]
  - Purulent discharge [Unknown]
  - Vascular access site pruritus [Unknown]
  - Vascular access site irritation [Unknown]
  - Wound dehiscence [Unknown]
  - Vascular access site bruising [Unknown]
  - Vascular access site haemorrhage [Unknown]
  - Vascular access site infection [Unknown]
  - Vascular access site pain [Unknown]
